FAERS Safety Report 24353168 (Version 1)
Quarter: 2024Q3

REPORT INFORMATION
  Report Type: Spontaneous
  Country: GB (occurrence: GB)
  Receive Date: 20240923
  Receipt Date: 20240923
  Transmission Date: 20241016
  Serious: Yes (Death, Other)
  Sender: OTSUKA
  Company Number: GB-OTSUKA-2024_026178

PATIENT
  Sex: Male

DRUGS (1)
  1. ABILIFY MAINTENA [Suspect]
     Active Substance: ARIPIPRAZOLE
     Indication: Product used for unknown indication
     Dosage: 400 MG, 1 PER 4 WEEKS
     Route: 065

REACTIONS (1)
  - Death [Fatal]
